FAERS Safety Report 25115093 (Version 1)
Quarter: 2025Q1

REPORT INFORMATION
  Report Type: Report from Study
  Country: US (occurrence: US)
  Receive Date: 20250324
  Receipt Date: 20250324
  Transmission Date: 20250408
  Serious: Yes (Other)
  Sender: ELI LILLY AND COMPANY
  Company Number: US-ELI_LILLY_AND_COMPANY-US202503009815

PATIENT

DRUGS (2)
  1. OMVOH [Suspect]
     Active Substance: MIRIKIZUMAB-MRKZ
     Indication: Colitis ulcerative
     Route: 042
  2. OMVOH [Suspect]
     Active Substance: MIRIKIZUMAB-MRKZ
     Route: 058

REACTIONS (1)
  - Pharyngitis streptococcal [Unknown]
